FAERS Safety Report 7183738-5 (Version None)
Quarter: 2010Q4

REPORT INFORMATION
  Report Type: 
  Country: None (occurrence: None)
  Receive Date: 20101220
  Receipt Date: 20101220
  Transmission Date: 20110411
  Serious: Yes (Hospitalization)
  Sender: FDA-Public Use
  Company Number: None

PATIENT
  Age: 80 Year
  Sex: Female
  Weight: 82.72 kg

DRUGS (17)
  1. ASPIRIN [Suspect]
     Indication: TRANSIENT ISCHAEMIC ATTACK
     Dosage: 81MG QPM PO CHRONIC
     Route: 048
  2. COUMADIN [Suspect]
     Indication: TRANSIENT ISCHAEMIC ATTACK
     Dosage: 1MG / 0.5MG T TH SS/MWF PO CHRONIC
     Route: 048
  3. FORADIL [Concomitant]
  4. ZETIA [Concomitant]
  5. HYDROCHLOROTHIAZIDE [Concomitant]
  6. FLEXERIL [Concomitant]
  7. RANITIDINE [Concomitant]
  8. PROVENTIL [Concomitant]
  9. NIASPAN [Concomitant]
  10. HUMALOG [Concomitant]
  11. SYNTHROID [Concomitant]
  12. RESTASIS [Concomitant]
  13. HUMALOG ISOPRENE [Concomitant]
  14. WELCHOL [Concomitant]
  15. OS-CAL [Concomitant]
  16. FOLIC ACID [Concomitant]
  17. TRAMADOL [Concomitant]

REACTIONS (5)
  - DISORIENTATION [None]
  - FALL [None]
  - HEADACHE [None]
  - HYPONATRAEMIA [None]
  - PNEUMONIA [None]
